FAERS Safety Report 9742287 (Version 1)
Quarter: 2013Q4

REPORT INFORMATION
  Report Type: Spontaneous
  Country: IT (occurrence: IT)
  Receive Date: 20131210
  Receipt Date: 20131210
  Transmission Date: 20140711
  Serious: Yes (Hospitalization)
  Sender: FDA-Public Use
  Company Number: IT-SA-2013SA124970

PATIENT
  Age: 89 Year
  Sex: Male

DRUGS (6)
  1. LASIX [Suspect]
     Indication: ISCHAEMIC CARDIOMYOPATHY
     Route: 048
     Dates: start: 20120101, end: 20130916
  2. ENAPREN [Suspect]
     Indication: HYPERTENSION
     Dosage: 5 MG TABLET; 2 POSOLOGICAL UNITS
     Route: 048
     Dates: start: 20120101, end: 20130916
  3. EUTIROX [Concomitant]
     Dosage: 100 MCG TABLET; 1 POSOLOGICAL UNIT. TAKES 75 MCG
     Route: 048
  4. CARDIOASPIRIN [Concomitant]
     Dosage: 100 MCG GASCRES TABLET; 1 POSOLOGICAL UNIT
     Route: 048
  5. NEXIUM [Concomitant]
     Dosage: 20 MG GAS RES TABLET; 1 POSOLOGICAL UNIT.
     Route: 048
  6. SALBUTAMOL [Concomitant]
     Dosage: 100 MCG/ EVERY SPRY DOSE; I POSOLOGICAL UNIT; INHALATION

REACTIONS (2)
  - Presyncope [Recovering/Resolving]
  - Hyponatraemia [Recovering/Resolving]
